FAERS Safety Report 13871135 (Version 2)
Quarter: 2017Q3

REPORT INFORMATION
  Report Type: Spontaneous
  Country: BR (occurrence: BR)
  Receive Date: 20170816
  Receipt Date: 20170816
  Transmission Date: 20171127
  Serious: No
  Sender: FDA-Public Use
  Company Number: BR-TEVA-795105ROM

PATIENT
  Age: 55 Year
  Sex: Female
  Weight: 60 kg

DRUGS (8)
  1. TEVACARBO [Suspect]
     Active Substance: CARBOPLATIN
     Indication: OVARIAN CANCER
     Route: 042
     Dates: start: 201606, end: 201610
  2. DECADRON [Concomitant]
     Active Substance: DEXAMETHASONE
     Indication: HORMONE THERAPY
  3. RANITIDINE. [Concomitant]
     Active Substance: RANITIDINE
     Indication: GASTROINTESTINAL DISORDER THERAPY
  4. HALOPERIDOL. [Concomitant]
     Active Substance: HALOPERIDOL
  5. GEMCITABINE [Concomitant]
     Active Substance: GEMCITABINE\GEMCITABINE HYDROCHLORIDE
     Indication: CHEMOTHERAPY
  6. TEVACARBO [Suspect]
     Active Substance: CARBOPLATIN
     Route: 042
     Dates: start: 201707, end: 2017
  7. DIMORF [Concomitant]
     Active Substance: MORPHINE SULFATE
     Indication: PAIN
  8. AMYTRIL [Concomitant]
     Active Substance: AMITRIPTYLINE HYDROCHLORIDE

REACTIONS (4)
  - Flushing [Not Recovered/Not Resolved]
  - Pruritus [Not Recovered/Not Resolved]
  - Respiratory disorder [Not Recovered/Not Resolved]
  - Dysphagia [Recovered/Resolved]

NARRATIVE: CASE EVENT DATE: 20170802
